FAERS Safety Report 8035587-3 (Version None)
Quarter: 2012Q1

REPORT INFORMATION
  Report Type: 
  Country: None (occurrence: None)
  Receive Date: 20120110
  Receipt Date: 20120110
  Transmission Date: 20120608
  Serious: Yes (Other)
  Sender: FDA-Public Use
  Company Number: None

PATIENT
  Sex: Female
  Weight: 1.03 kg

DRUGS (1)
  1. CALCIUM CHLORIDE [Suspect]
     Indication: MINERAL SUPPLEMENTATION
     Dosage: 152.6 MG ONCE IV INFUSION
     Route: 042
     Dates: start: 20110814

REACTIONS (1)
  - INFUSION SITE DISCOLOURATION [None]
